FAERS Safety Report 16873270 (Version 1)
Quarter: 2019Q4

REPORT INFORMATION
  Report Type: Spontaneous
  Country: US (occurrence: US)
  Receive Date: 20191001
  Receipt Date: 20191001
  Transmission Date: 20200122
  Serious: Yes (Other)
  Sender: FDA-Public Use
  Company Number: US-ORPHAN EUROPE-2075125

PATIENT
  Age: 27 Year
  Sex: Female

DRUGS (2)
  1. CARBAGLU [Suspect]
     Active Substance: CARGLUMIC ACID
     Indication: UREA CYCLE DISORDER
  2. CARBAGLU [Suspect]
     Active Substance: CARGLUMIC ACID

REACTIONS (3)
  - Cough [Unknown]
  - Laryngeal stenosis [Unknown]
  - Dyspnoea [Unknown]
